FAERS Safety Report 8975523 (Version 1)
Quarter: 2012Q4

REPORT INFORMATION
  Report Type: 
  Country: US (occurrence: US)
  Receive Date: 20121219
  Receipt Date: 20121219
  Transmission Date: 20130627
  Serious: No
  Sender: FDA-Public Use
  Company Number: US-AMGEN-USASP2012071775

PATIENT
  Age: 60 Year
  Sex: Female

DRUGS (3)
  1. PROLIA [Suspect]
     Indication: OSTEOPOROSIS POSTMENOPAUSAL
     Dosage: UNK
     Dates: start: 20120806
  2. CALCIUM/VITAMIN D                  /01204201/ [Concomitant]
     Dosage: 1200 mg, q3h
  3. CALCIUM/VITAMIN D                  /01204201/ [Concomitant]
     Dosage: UNK UNK, qd

REACTIONS (3)
  - Back pain [Recovered/Resolved]
  - Pain in jaw [Recovered/Resolved]
  - Local swelling [Recovered/Resolved]
